FAERS Safety Report 8924596 (Version 3)
Quarter: 2013Q1

REPORT INFORMATION
  Report Type: Spontaneous
  Country: ES (occurrence: ES)
  Receive Date: 20121126
  Receipt Date: 20130124
  Transmission Date: 20140127
  Serious: Yes (Hospitalization)
  Sender: FDA-Public Use
  Company Number: ES-GLAXOSMITHKLINE-B0846563A

PATIENT
  Age: 69 Year
  Sex: Female

DRUGS (4)
  1. BENLYSTA [Suspect]
     Indication: SYSTEMIC LUPUS ERYTHEMATOSUS
     Dosage: 10MGK PER DAY
     Route: 040
     Dates: start: 20120711, end: 20121030
  2. HYDROXYCHLOROQUINE [Concomitant]
     Indication: CUTANEOUS LUPUS ERYTHEMATOSUS
     Dosage: 20MG PER DAY
  3. AZATHIOPRINE [Concomitant]
     Indication: CUTANEOUS LUPUS ERYTHEMATOSUS
  4. PREDNISONE [Concomitant]
     Indication: CUTANEOUS LUPUS ERYTHEMATOSUS
     Dosage: 30MG PER DAY

REACTIONS (6)
  - Cryptococcosis [Recovering/Resolving]
  - Pancreatitis acute [Unknown]
  - Ophthalmic herpes simplex [Unknown]
  - Pyrexia [Recovered/Resolved]
  - Headache [Unknown]
  - Generalised oedema [Unknown]
